FAERS Safety Report 5418470-9 (Version None)
Quarter: 2007Q3

REPORT INFORMATION
  Report Type: 
  Country: None (occurrence: None)
  Receive Date: 20070817
  Receipt Date: 20070807
  Transmission Date: 20080115
  Serious: Yes (Other)
  Sender: FDA-Public Use
  Company Number: US-ELI_LILLY_AND_COMPANY-US200708001584

PATIENT
  Age: 65 Year
  Sex: Female

DRUGS (3)
  1. CYMBALTA [Suspect]
     Indication: DEPRESSION
     Dosage: 20 MG, DAILY (1/D)
     Route: 048
     Dates: start: 20070401
  2. FLUTICASONE ^GLAXO^ [Concomitant]
     Indication: RHINITIS ALLERGIC
     Dosage: 4 SPRAYS DAILY
     Dates: start: 20070501
  3. VYTORIN [Concomitant]
     Indication: BLOOD CHOLESTEROL INCREASED
     Dosage: 10 MG, DAILY (1/D)
     Route: 048
     Dates: start: 20070601

REACTIONS (2)
  - MIGRAINE [None]
  - OCULAR NEOPLASM [None]
